FAERS Safety Report 10597899 (Version 1)
Quarter: 2014Q4

REPORT INFORMATION
  Report Type: Spontaneous
  Country: US (occurrence: None)
  Receive Date: 20141112
  Receipt Date: 20141112
  Transmission Date: 20150529
  Serious: No
  Sender: FDA-Public Use
  Company Number: US-016525

PATIENT
  Age: 68 Year
  Sex: Female
  Weight: 58.97 kg

DRUGS (1)
  1. PREPOPIK [Suspect]
     Active Substance: ANHYDROUS CITRIC ACID\MAGNESIUM OXIDE\SODIUM PICOSULFATE
     Indication: BOWEL PREPARATION
     Dosage: FIRST PACKET: 28 AUG 2014 AT 5:00 PM;
     Route: 048
     Dates: start: 20140828

REACTIONS (4)
  - Paraesthesia oral [None]
  - Feeling abnormal [None]
  - Feeling hot [None]
  - Product reconstitution issue [None]

NARRATIVE: CASE EVENT DATE: 20140828
